FAERS Safety Report 6725162-2 (Version None)
Quarter: 2010Q2

REPORT INFORMATION
  Report Type: 
  Country: None (occurrence: None)
  Receive Date: 20100514
  Receipt Date: 20100504
  Transmission Date: 20101027
  Serious: Yes (Other)
  Sender: FDA-Public Use
  Company Number: FR-KINGPHARMUSA00001-K201000540

PATIENT
  Age: 76 Year
  Sex: Male

DRUGS (6)
  1. ALTACE [Suspect]
     Indication: HYPERTENSION
     Dosage: 10 MG, SINGLE
     Route: 048
  2. ALTACE [Suspect]
     Dosage: 1.25 MG, TWO SEPARATE OCCASSIONS
     Route: 048
  3. TYLENOL W/ CODEINE [Suspect]
     Indication: PAIN
     Dosage: 60 MG, SINGLE
     Route: 048
  4. ADVAIR DISKUS 100/50 [Concomitant]
  5. FLOVENT [Concomitant]
     Dosage: UNK
  6. METOPROLOL TARTRATE [Concomitant]

REACTIONS (17)
  - ASTHENIA [None]
  - BLOOD PRESSURE INCREASED [None]
  - BURNING MOUTH SYNDROME [None]
  - CEREBROVASCULAR ACCIDENT [None]
  - CONVULSION [None]
  - DIZZINESS [None]
  - DRUG INEFFECTIVE [None]
  - DRUG INTOLERANCE [None]
  - DYSSTASIA [None]
  - HYPOTENSION [None]
  - MUSCLE SPASMS [None]
  - NAUSEA [None]
  - PARALYSIS [None]
  - PLEURITIC PAIN [None]
  - PSORIASIS [None]
  - RASH [None]
  - URINARY RETENTION [None]
